FAERS Safety Report 4815148-7 (Version None)
Quarter: 2005Q4

REPORT INFORMATION
  Report Type: 
  Country: None (occurrence: None)
  Receive Date: 20051026
  Receipt Date: 20051018
  Transmission Date: 20060501
  Serious: Yes (Hospitalization, Other)
  Sender: FDA-Public Use
  Company Number: ST-2005-008659

PATIENT
  Age: 76 Year
  Sex: Male

DRUGS (4)
  1. OLMETEC [Suspect]
     Indication: HYPERTENSION
     Dosage: 10 MG QD PO
     Route: 048
     Dates: start: 20050319, end: 20050922
  2. ADALAT [Concomitant]
  3. MAGLAX [Concomitant]
  4. GRAMALIL [Concomitant]

REACTIONS (2)
  - LEUKOPENIA [None]
  - PYREXIA [None]
